FAERS Safety Report 9217940 (Version 2)
Quarter: 2013Q2

REPORT INFORMATION
  Report Type: Report from Study
  Country: DE (occurrence: DE)
  Receive Date: 20130408
  Receipt Date: 20130611
  Transmission Date: 20140414
  Serious: Yes (Death)
  Sender: FDA-Public Use
  Company Number: DE-ACTELION-A-US2013-81727

PATIENT
  Age: 77 Year
  Sex: Male

DRUGS (7)
  1. VENTAVIS [Suspect]
     Indication: PULMONARY ARTERIAL HYPERTENSION
     Dosage: 5 MCG, Q4HRS
     Route: 055
  2. TRACLEER [Concomitant]
     Indication: PULMONARY ARTERIAL HYPERTENSION
  3. REVATIO [Concomitant]
  4. ATACAND [Concomitant]
  5. TOREM [Concomitant]
  6. MARCUMAR [Concomitant]
  7. AQUAPHOR [Concomitant]
     Dosage: 5 , UNK

REACTIONS (1)
  - Death [Fatal]
